FAERS Safety Report 13822689 (Version 8)
Quarter: 2020Q2

REPORT INFORMATION
  Report Type: Report from Study
  Country: US (occurrence: US)
  Receive Date: 20170801
  Receipt Date: 20200511
  Transmission Date: 20200713
  Serious: Yes (Hospitalization)
  Sender: FDA-Public Use
  Company Number: US-ACTELION-A-US2017-155613

PATIENT
  Age: 70 Year
  Sex: Male
  Weight: 106.58 kg

DRUGS (3)
  1. ADEMPAS [Concomitant]
     Active Substance: RIOCIGUAT
  2. DILTIAZEM. [Concomitant]
     Active Substance: DILTIAZEM
  3. OPSUMIT [Suspect]
     Active Substance: MACITENTAN
     Indication: PULMONARY ARTERIAL HYPERTENSION
     Dosage: 10 MG, QD
     Route: 048
     Dates: start: 20170508

REACTIONS (10)
  - Chronic obstructive pulmonary disease [Unknown]
  - Hospitalisation [Unknown]
  - Cardiac failure congestive [Unknown]
  - Candida infection [Unknown]
  - Abdominal pain [Unknown]
  - Oedema [Unknown]
  - Appendicitis [Unknown]
  - Fluid retention [Unknown]
  - Dyspnoea [Unknown]
  - Pneumonia [Unknown]

NARRATIVE: CASE EVENT DATE: 20170613
